FAERS Safety Report 6131351-0 (Version None)
Quarter: 2009Q1

REPORT INFORMATION
  Report Type: 
  Country: None (occurrence: None)
  Receive Date: 20090325
  Receipt Date: 20080605
  Transmission Date: 20090719
  Serious: Yes (Life-Threatening, Hospitalization)
  Sender: FDA-Public Use
  Company Number: US-BRISTOL-MYERS SQUIBB COMPANY-14133102

PATIENT
  Age: 76 Year
  Sex: Male

DRUGS (2)
  1. ERBITUX [Suspect]
     Indication: COLON CANCER METASTATIC
     Dosage: DUR-10-15 MINUTES. 500 MG/M2 ONCE IN 14 DAYS, BSA 1.8
     Route: 042
     Dates: start: 20080326, end: 20080326
  2. BENADRYL [Concomitant]
     Indication: PREMEDICATION
     Route: 042

REACTIONS (1)
  - ANAPHYLACTIC REACTION [None]
